FAERS Safety Report 19512053 (Version 1)
Quarter: 2021Q3

REPORT INFORMATION
  Report Type: Spontaneous
  Country: US (occurrence: US)
  Receive Date: 20210709
  Receipt Date: 20210709
  Transmission Date: 20211014
  Serious: Yes (Death)
  Sender: FDA-Public Use
  Company Number: US-AVEO ONCOLOGY-2021-AVEO-US003411

PATIENT

DRUGS (14)
  1. CYCLOBENZAPRINE. [Concomitant]
     Active Substance: CYCLOBENZAPRINE
  2. DEXAMETHASONE. [Concomitant]
     Active Substance: DEXAMETHASONE
  3. FENTANYL. [Concomitant]
     Active Substance: FENTANYL
  4. LEVOTHYROXINE SODIUM. [Concomitant]
     Active Substance: LEVOTHYROXINE SODIUM
  5. AMBIEN [Concomitant]
     Active Substance: ZOLPIDEM TARTRATE
  6. DOCUSATE [Concomitant]
     Active Substance: DOCUSATE
  7. FOTIVDA [Suspect]
     Active Substance: TIVOZANIB HYDROCHLORIDE
     Indication: RENAL CELL CARCINOMA
     Dosage: 1.34 MG, DAILY ON DAYS 1 TO 21 THEN 7 DAYS OFF
     Route: 048
  8. ALBUTEROL. [Concomitant]
     Active Substance: ALBUTEROL
  9. DILAUDID [Concomitant]
     Active Substance: HYDROMORPHONE HYDROCHLORIDE
  10. ACETAMINOPHEN. [Concomitant]
     Active Substance: ACETAMINOPHEN
  11. SENOKOT [Concomitant]
     Active Substance: SENNOSIDES
  12. FLOMAX [Concomitant]
     Active Substance: TAMSULOSIN HYDROCHLORIDE
  13. COZAAR [Concomitant]
     Active Substance: LOSARTAN POTASSIUM
  14. MIRALAX [Concomitant]
     Active Substance: POLYETHYLENE GLYCOL 3350

REACTIONS (1)
  - Disease progression [Fatal]

NARRATIVE: CASE EVENT DATE: 20210616
